FAERS Safety Report 4558445-5 (Version None)
Quarter: 2005Q1

REPORT INFORMATION
  Report Type: 
  Country: None (occurrence: None)
  Receive Date: 20050119
  Receipt Date: 20050107
  Transmission Date: 20050727
  Serious: Yes (Other)
  Sender: FDA-Public Use
  Company Number: 2005008958

PATIENT
  Age: 54 Year
  Sex: Female
  Weight: 77.1115 kg

DRUGS (2)
  1. BENGAY PAIN RELIEVING PATCH (MENTHOL) [Suspect]
     Indication: MUSCLE TIGHTNESS
     Dosage: 1 PATCH, DAILY, TOPICAL
     Route: 061
     Dates: start: 20040101, end: 20041224
  2. CODEINE PHOSPHATE AND ACETAMINOPHEN [Concomitant]

REACTIONS (1)
  - INTERVERTEBRAL DISC PROTRUSION [None]
